FAERS Safety Report 7251469-9 (Version None)
Quarter: 2011Q1

REPORT INFORMATION
  Report Type: 
  Country: None (occurrence: None)
  Receive Date: 20110128
  Receipt Date: 20110119
  Transmission Date: 20110831
  Serious: Yes (Hospitalization)
  Sender: FDA-Public Use
  Company Number: US-ASTRAZENECA-2011SE03219

PATIENT
  Age: 75 Year
  Sex: Female

DRUGS (5)
  1. CRESTOR [Suspect]
     Indication: HYPERLIPIDAEMIA
     Route: 048
  2. CRESTOR [Suspect]
     Route: 048
     Dates: start: 20110102
  3. ASPIRIN [Concomitant]
  4. LASIX [Concomitant]
  5. PLAVIX [Concomitant]

REACTIONS (8)
  - ABDOMINAL PAIN [None]
  - HYPOKINESIA [None]
  - MUSCLE SPASMS [None]
  - CREATININE RENAL CLEARANCE INCREASED [None]
  - BLOOD CREATINE PHOSPHOKINASE INCREASED [None]
  - LIVER FUNCTION TEST ABNORMAL [None]
  - MUSCLE FATIGUE [None]
  - BLOOD CREATININE INCREASED [None]
